FAERS Safety Report 25050734 (Version 2)
Quarter: 2025Q1

REPORT INFORMATION
  Report Type: Spontaneous
  Country: US (occurrence: US)
  Receive Date: 20250307
  Receipt Date: 20250324
  Transmission Date: 20250409
  Serious: Yes (Hospitalization)
  Sender: MERCK SHARP & DOHME LLC
  Company Number: US-009507513-2502USA001153

PATIENT
  Age: 62 Year
  Sex: Male
  Weight: 74 kg

DRUGS (14)
  1. KEYTRUDA [Suspect]
     Active Substance: PEMBROLIZUMAB
     Indication: Oropharyngeal squamous cell carcinoma
     Dosage: DOSE DESCRIPTION : 200 MILLIGRAM, Q3W?DAILY DOSE : 9.4 MILLIGRAM?REGIMEN DOSE : 200  MILLIGRAM
     Route: 042
     Dates: start: 20250110, end: 20250110
  2. ORDASTOBART [Suspect]
     Active Substance: ORDASTOBART
     Indication: Oropharyngeal squamous cell carcinoma
     Dosage: DOSE DESCRIPTION : 0.1 MILLIGRAM/KILOGRAM (TOTAL 7.4 MG), Q3W?DAILY DOSE : 0.005 MILLIGRAM/KILOGR...
     Route: 042
     Dates: start: 20250110, end: 20250110
  3. LACTATED RINGERS SOLUTION [Concomitant]
     Active Substance: CALCIUM CHLORIDE\POTASSIUM CHLORIDE\SODIUM CHLORIDE\SODIUM LACTATE
     Indication: Fluid replacement
     Dosage: DOSE DESCRIPTION : 1000 MILLILITER, QD?DAILY DOSE : 1000 MILLILITER?REGIMEN DOSE : 2000  MILLILITER
     Dates: start: 20250121, end: 20250122
  4. ENOXAPARIN [Concomitant]
     Active Substance: ENOXAPARIN
     Indication: Thrombosis prophylaxis
     Dosage: DOSE DESCRIPTION : 40 MILLIGRAM, QD?DAILY DOSE : 40 MILLIGRAM
     Dates: start: 20250123
  5. PARAFFIN [Concomitant]
     Active Substance: PARAFFIN
     Indication: Rash
     Dosage: DOSE DESCRIPTION : 1 APPLICATION, BID?DAILY DOSE : 2 DOSAGE FORM
     Dates: start: 20250121
  6. NYSTATIN [Concomitant]
     Active Substance: NYSTATIN
     Indication: Mucosal inflammation
     Dosage: DOSE DESCRIPTION : 500000 INTERNATIONAL UNIT, QID?DAILY DOSE : 2000000 INTERNATIONAL UNIT
     Dates: start: 20250122
  7. DEXAMETHASONE [Concomitant]
     Active Substance: DEXAMETHASONE
     Indication: Pain
     Dates: start: 20250121
  8. METOCLOPRAMIDE [Concomitant]
     Active Substance: METOCLOPRAMIDE
     Indication: Nausea
     Dates: start: 20250122, end: 20250122
  9. SODIUM CHLORIDE [Concomitant]
     Active Substance: SODIUM CHLORIDE
     Indication: Fluid replacement
     Dates: start: 20250121, end: 20250122
  10. CLOBETASOL PROPIONATE [Concomitant]
     Active Substance: CLOBETASOL PROPIONATE
     Indication: Rash
     Dosage: DOSE DESCRIPTION : 1 DOSAGE FORM APPLY TO ARMS AND TRUNK, BID?DAILY DOSE : 2 DOSAGE FORM
     Dates: start: 20250121
  11. HYDROCORTISONE [Concomitant]
     Active Substance: HYDROCORTISONE
     Indication: Rash
     Dosage: DOSE DESCRIPTION : 1 APPLICATION APPLY TO FACE/AXILLAE/GROIN FOR RASH, BID?DAILY DOSE : 2 DOSAGE ...
     Dates: start: 20250121
  12. ACETAMINOPHEN [Concomitant]
     Active Substance: ACETAMINOPHEN
     Indication: Pain
     Dates: start: 20250122, end: 20250122
  13. OXYCODONE HYDROCHLORIDE [Concomitant]
     Active Substance: OXYCODONE HYDROCHLORIDE
     Indication: Oral pain
     Dates: start: 20250121, end: 20250123
  14. ONDANSETRON [Concomitant]
     Active Substance: ONDANSETRON
     Indication: Product used for unknown indication
     Dates: start: 20250121, end: 20250122

REACTIONS (1)
  - Syncope [Recovered/Resolved]

NARRATIVE: CASE EVENT DATE: 20250127
